FAERS Safety Report 5598879-3 (Version None)
Quarter: 2008Q1

REPORT INFORMATION
  Report Type: 
  Country: None (occurrence: None)
  Receive Date: 20080122
  Receipt Date: 20080118
  Transmission Date: 20080703
  Serious: Yes (Hospitalization)
  Sender: FDA-Public Use
  Company Number: DE-RANBAXY-2008US-12705

PATIENT

DRUGS (1)
  1. ISOPTIN SR [Suspect]
     Indication: DRUG USE FOR UNKNOWN INDICATION
     Dosage: 120 MG, 18 TABLETS
     Route: 048
     Dates: start: 20080115, end: 20080115

REACTIONS (4)
  - HEART RATE DECREASED [None]
  - HYPERTENSION [None]
  - SUICIDE ATTEMPT [None]
  - UNEVALUABLE EVENT [None]
